FAERS Safety Report 5638829-4 (Version None)
Quarter: 2008Q1

REPORT INFORMATION
  Report Type: 
  Country: None (occurrence: None)
  Receive Date: 20080226
  Receipt Date: 20080218
  Transmission Date: 20080703
  Serious: Yes (Hospitalization)
  Sender: FDA-Public Use
  Company Number: PHEH2008US01689

PATIENT
  Age: 83 Year
  Sex: Female

DRUGS (5)
  1. SYNTHROID [Concomitant]
     Indication: HYPOTHYROIDISM
  2. LISINOPRIL [Concomitant]
     Indication: HYPERTENSION
  3. PRAVACHOL [Concomitant]
     Indication: BLOOD CHOLESTEROL INCREASED
  4. ZETIA [Concomitant]
     Indication: BLOOD CHOLESTEROL INCREASED
  5. RECLAST [Suspect]
     Indication: OSTEOPOROSIS
     Dosage: 5 MG, ONCE YEARLY
     Dates: start: 20080130

REACTIONS (4)
  - GLOBAL AMNESIA [None]
  - HEADACHE [None]
  - IDIOSYNCRATIC DRUG REACTION [None]
  - MEMORY IMPAIRMENT [None]
